FAERS Safety Report 23796234 (Version 1)
Quarter: 2024Q2

REPORT INFORMATION
  Report Type: Spontaneous
  Country: ZA (occurrence: ZA)
  Receive Date: 20240430
  Receipt Date: 20240430
  Transmission Date: 20240716
  Serious: Yes (Hospitalization)
  Sender: FDA-Public Use
  Company Number: ZA-ABBOTT-2024A-1380801

PATIENT
  Age: 77 Year
  Sex: Female

DRUGS (15)
  1. CREON [Suspect]
     Active Substance: PANCRELIPASE AMYLASE\PANCRELIPASE LIPASE\PANCRELIPASE PROTEASE
     Indication: Pancreatic failure
     Dosage: 300 MG DIRECTIONS TAKE OME CAPSULE THREE TIMES A DAY?CREON 25000 (PANCREATIN)
     Route: 048
  2. ENOXAPARIN SODIUM [Concomitant]
     Active Substance: ENOXAPARIN SODIUM
     Indication: Thrombosis prophylaxis
     Dosage: 40 MG DIRECTIONS INJECT AT 18:00 ON 18/04/2024?CLEXANE PRE-FILLED (ENOXAPARIN SODIUM)
     Route: 058
     Dates: start: 20240418
  3. SERDEP [Concomitant]
     Indication: Mental disorder
     Dosage: 100 MG DIRECTIONS AS DIRECTED?SERDEP (SERTRALINE)
     Route: 048
  4. SERDEP [Concomitant]
     Indication: Mental disorder
     Dosage: 50 MG DIRECTIONS TAKE ONE TABLET AT NIGHT?SERDEP (SERTRALINE)
     Route: 048
  5. FLUTICASONE PROPIONATE [Concomitant]
     Active Substance: FLUTICASONE PROPIONATE
     Indication: Hypersensitivity
     Dosage: 50 MCG DIRECTIONS ONE SPRAY IN EACH NOSTRIL TWICE A DAY?FLOMIST 120 DOSE (FLUTICASONE  PROPIONATE)
     Route: 045
  6. LIPOGEN [Concomitant]
     Indication: Blood cholesterol
     Dosage: 40 MG DIRECTIONS TAKE ONE TABLET AT NIGHT?LIPOGEN (SERTRALINE)
     Route: 048
  7. PANTOCID [Concomitant]
     Indication: Ulcer
     Dosage: 20 MG DIRECTIONS TAKE ONE TABLET IN THE MORNING?PANTOCID (PANTOPRAZOLE)
     Route: 048
  8. MEMANTINE HYDROCHLORIDE [Concomitant]
     Active Substance: MEMANTINE HYDROCHLORIDE
     Indication: Dementia Alzheimer^s type
     Dosage: 10 MG DIRECTIONS ONE TABLET ONCE A DAY?MEMOR (MEMANTINE  HYDROCHLORIDE)
     Route: 048
  9. AMIODARONE [Concomitant]
     Active Substance: AMIODARONE
     Indication: Arrhythmia
     Dosage: 100 MG TAKE ONE TABLET ONCE A DAY?HEXARONE (AMIODARONE)
     Route: 048
  10. GLUCOPHAGE XR [Concomitant]
     Active Substance: METFORMIN HYDROCHLORIDE
     Indication: Type 2 diabetes mellitus
     Dosage: 1000 MG DIRECTIONS TAKE ONE TABLET TWICE A DAY?GLUCOPHAGE XR (METFORMIN)
     Route: 048
  11. BE-TABS FOLIC-ACID [Concomitant]
     Indication: Coronary artery disease
     Dosage: 5 MG DIRECTIONS TAKE ONE TABLET ONCE A DAY?BE-TABS FOLIC-ACID (FOLOC ACID)
     Route: 048
  12. ALZIDO [Concomitant]
     Indication: Dementia Alzheimer^s type
     Dosage: 5 MG DIRECTIONS TAKE ONE TABLET AT NIGHT?ALZIDO (DONEPEZIL)
     Route: 048
  13. GEN PAYNE [Concomitant]
     Indication: Product used for unknown indication
     Dosage: DIRECTIONS AS DIRECTED?GENPAYNE (IBUPROFEN)
     Route: 048
  14. DONEPEZIL HYDROCHLORIDE [Concomitant]
     Active Substance: DONEPEZIL HYDROCHLORIDE
     Indication: Dementia Alzheimer^s type
     Dosage: 5 MG DIRECTIONS ONE TABLET AT NIGHT?DONECEPT (DONEPEZIL)
     Route: 048
  15. BISOPROLOL FUMARATE [Concomitant]
     Active Substance: BISOPROLOL FUMARATE
     Indication: Hypertension
     Dosage: 5 MG DIRECTIONS NE TAKE ONE TABLET ONCE A DAY?BILOCOR (BISOPROLOL)
     Route: 048

REACTIONS (1)
  - Knee arthroplasty [Unknown]
